FAERS Safety Report 5957021-7 (Version None)
Quarter: 2008Q4

REPORT INFORMATION
  Report Type: 
  Country: None (occurrence: None)
  Receive Date: 20081118
  Receipt Date: 20080909
  Transmission Date: 20090506
  Serious: No
  Sender: FDA-Public Use
  Company Number: A0746597A

PATIENT
  Age: 67 Year
  Sex: Female

DRUGS (8)
  1. COREG CR [Suspect]
     Indication: HYPERTENSION
     Dosage: 20MG PER DAY
     Route: 048
     Dates: start: 20080901
  2. DIOVAN [Concomitant]
  3. DARVOCET [Concomitant]
  4. ALBUTEROL [Concomitant]
  5. ESTRADIOL [Concomitant]
  6. LOVASTATIN [Concomitant]
  7. ALPRAZOLAM [Concomitant]
  8. ASPIRIN [Concomitant]

REACTIONS (5)
  - CHEST DISCOMFORT [None]
  - DEPRESSED MOOD [None]
  - DYSPNOEA [None]
  - FATIGUE [None]
  - VASODILATATION [None]
